FAERS Safety Report 8783141 (Version 3)
Quarter: 2012Q4

REPORT INFORMATION
  Report Type: 
  Country: GB (occurrence: GB)
  Receive Date: 20120913
  Receipt Date: 20121002
  Transmission Date: 20130627
  Serious: Yes (Other)
  Sender: FDA-Public Use
  Company Number: GB-WATSON-2012-15988

PATIENT
  Age: 15 Year
  Sex: Female

DRUGS (5)
  1. LAMOTRIGINE (UNKNOWN) [Suspect]
     Indication: BIPOLAR DISORDER
     Dosage: Unknown/dosage form: Unspecified
     Route: 065
  2. CETIRIZINE (UNKNOWN) [Suspect]
     Indication: SEASONAL ALLERGY
     Dosage: Occasional Cetirizine
     Route: 048
  3. ABILIFY [Suspect]
     Indication: BIPOLAR DISORDER
     Dosage: Dosage form: Unspecified
     Route: 065
  4. ETONOGESTREL [Suspect]
     Indication: CONTRACEPTION
     Dosage: Dosage form: Implant/1 trimester
     Route: 065
  5. CETIRIZINE HYDROCHLORIDE [Suspect]
     Indication: SEASONAL ALLERGY
     Route: 048

REACTIONS (4)
  - Abortion spontaneous [Unknown]
  - Pregnancy [Recovered/Resolved]
  - Exposure during pregnancy [Recovered/Resolved]
  - Unintended pregnancy [Recovered/Resolved]
